FAERS Safety Report 16900994 (Version 1)
Quarter: 2019Q4

REPORT INFORMATION
  Report Type: Spontaneous
  Country: US (occurrence: US)
  Receive Date: 20191009
  Receipt Date: 20191009
  Transmission Date: 20200122
  Serious: No
  Sender: FDA-Public Use
  Company Number: US-ALKERMES INC.-ALK-2019-002020

PATIENT
  Age: 42 Year
  Sex: Male

DRUGS (1)
  1. ARISTADA [Suspect]
     Active Substance: ARIPIPRAZOLE LAUROXIL
     Indication: PRODUCT USED FOR UNKNOWN INDICATION
     Dosage: 882 MG, UNK
     Route: 030

REACTIONS (1)
  - Dry eye [Unknown]
